FAERS Safety Report 24685176 (Version 2)
Quarter: 2024Q4

REPORT INFORMATION
  Report Type: Spontaneous
  Country: US (occurrence: US)
  Receive Date: 20241202
  Receipt Date: 20241212
  Transmission Date: 20250115
  Serious: Yes (Other)
  Sender: BAYER HEALTHCARE LLC
  Company Number: US-BAYER-2024A167287

PATIENT
  Age: 23 Year
  Sex: Female

DRUGS (1)
  1. ASPIRIN [Suspect]
     Active Substance: ASPIRIN
     Dosage: UNK

REACTIONS (6)
  - Foetal distress syndrome [Recovering/Resolving]
  - Foetal heart rate deceleration abnormality [Recovering/Resolving]
  - Bradycardia foetal [Recovering/Resolving]
  - Premature delivery [Recovering/Resolving]
  - Exposure during pregnancy [Recovering/Resolving]
  - Contraindicated product administered [Recovering/Resolving]
